APPROVED DRUG PRODUCT: DEXEDRINE
Active Ingredient: DEXTROAMPHETAMINE SULFATE
Strength: 5MG/5ML **Federal Register determination that product was not discontinued or withdrawn for safety or effectiveness reasons**
Dosage Form/Route: ELIXIR;ORAL
Application: A083902 | Product #001
Applicant: GLAXOSMITHKLINE
Approved: Approved Prior to Jan 1, 1982 | RLD: No | RS: No | Type: DISCN